FAERS Safety Report 6539080-6 (Version None)
Quarter: 2010Q1

REPORT INFORMATION
  Report Type: 
  Country: None (occurrence: None)
  Receive Date: 20100115
  Receipt Date: 20100108
  Transmission Date: 20100710
  Serious: Yes (Other)
  Sender: FDA-Public Use
  Company Number: PHEH2009US14110

PATIENT
  Sex: Female

DRUGS (4)
  1. EXJADE [Suspect]
     Indication: SERUM FERRITIN INCREASED
     Dosage: 500 MG, QD
     Route: 048
     Dates: start: 20080923
  2. EXJADE [Suspect]
     Dosage: 750 MG, QD
     Route: 048
     Dates: end: 20090925
  3. HYDROXYUREA [Suspect]
     Dosage: UNK, UNK
     Route: 065
  4. HYDROXYUREA [Suspect]
     Dosage: UNK
     Dates: start: 20090101, end: 20090401

REACTIONS (4)
  - ALANINE AMINOTRANSFERASE INCREASED [None]
  - ASPARTATE AMINOTRANSFERASE INCREASED [None]
  - BONE MARROW DISORDER [None]
  - HEPATIC FUNCTION ABNORMAL [None]
